FAERS Safety Report 5402669-1 (Version None)
Quarter: 2007Q3

REPORT INFORMATION
  Report Type: 
  Country: None (occurrence: None)
  Receive Date: 20070801
  Receipt Date: 20070724
  Transmission Date: 20080115
  Serious: Yes (Other)
  Sender: FDA-Public Use
  Company Number: A0665900A

PATIENT
  Age: 40 Year
  Sex: Male

DRUGS (1)
  1. ZYBAN [Suspect]
     Route: 048
     Dates: start: 20051015

REACTIONS (5)
  - DRY MOUTH [None]
  - INFLUENZA [None]
  - SUICIDAL IDEATION [None]
  - THIRST [None]
  - VOMITING [None]
